FAERS Safety Report 7982737-0 (Version None)
Quarter: 2011Q4

REPORT INFORMATION
  Report Type: 
  Country: None (occurrence: None)
  Receive Date: 20111215
  Receipt Date: 20111201
  Transmission Date: 20120403
  Serious: Yes (Hospitalization)
  Sender: FDA-Public Use
  Company Number: JP-SANOFI-AVENTIS-2011SA080961

PATIENT
  Age: 60 Year
  Sex: Male

DRUGS (14)
  1. PLAVIX [Suspect]
     Route: 048
     Dates: end: 20111110
  2. ASPIRIN [Suspect]
     Route: 048
     Dates: end: 20111110
  3. LANSOPRAZOLE [Suspect]
     Route: 048
     Dates: start: 20111005, end: 20111110
  4. CARVEDILOL [Suspect]
     Route: 048
     Dates: end: 20111110
  5. WARFARIN SODIUM [Suspect]
     Route: 048
     Dates: end: 20111110
  6. ENALAPRIL MALEATE [Suspect]
     Route: 048
     Dates: end: 20111110
  7. TEPRENONE [Suspect]
     Route: 048
     Dates: end: 20111110
  8. MAGNESIUM OXIDE [Suspect]
     Route: 048
     Dates: end: 20111110
  9. LASIX [Suspect]
     Route: 065
     Dates: end: 20111110
  10. ENALAPRIL MALEATE [Suspect]
     Route: 048
     Dates: start: 20111116, end: 20111124
  11. ITAVASTATIN [Suspect]
     Route: 048
     Dates: end: 20111110
  12. ASPIRIN [Suspect]
     Route: 048
     Dates: start: 20111116, end: 20111124
  13. LASIX [Suspect]
     Route: 065
     Dates: start: 20111116, end: 20111124
  14. SENNOSIDE A+B [Suspect]
     Route: 048
     Dates: end: 20111110

REACTIONS (2)
  - SEPSIS [None]
  - GRANULOCYTOPENIA [None]
